FAERS Safety Report 25999882 (Version 1)
Quarter: 2025Q4

REPORT INFORMATION
  Report Type: Spontaneous
  Country: IN (occurrence: IN)
  Receive Date: 20251105
  Receipt Date: 20251105
  Transmission Date: 20260118
  Serious: Yes (Death, Hospitalization)
  Sender: MYLAN
  Company Number: IN-MYLANLABS-2025M1093361

PATIENT
  Age: 5 Decade
  Sex: Male

DRUGS (40)
  1. DEXAMETHASONE [Suspect]
     Active Substance: DEXAMETHASONE
     Indication: Chemical poisoning
     Dosage: 8 MILLIGRAM, THREE TIMES A DAY
  2. DEXAMETHASONE [Suspect]
     Active Substance: DEXAMETHASONE
     Indication: Pneumothorax spontaneous
     Dosage: 8 MILLIGRAM, THREE TIMES A DAY
     Route: 030
  3. DEXAMETHASONE [Suspect]
     Active Substance: DEXAMETHASONE
     Dosage: 8 MILLIGRAM, THREE TIMES A DAY
     Route: 030
  4. DEXAMETHASONE [Suspect]
     Active Substance: DEXAMETHASONE
     Dosage: 8 MILLIGRAM, THREE TIMES A DAY
  5. HYDROCORTISONE [Suspect]
     Active Substance: HYDROCORTISONE
     Indication: Chemical poisoning
     Dosage: 100 MILLIGRAM, Q8H
  6. HYDROCORTISONE [Suspect]
     Active Substance: HYDROCORTISONE
     Indication: Pneumothorax spontaneous
     Dosage: 100 MILLIGRAM, Q8H
     Route: 042
  7. HYDROCORTISONE [Suspect]
     Active Substance: HYDROCORTISONE
     Dosage: 100 MILLIGRAM, Q8H
     Route: 042
  8. HYDROCORTISONE [Suspect]
     Active Substance: HYDROCORTISONE
     Dosage: 100 MILLIGRAM, Q8H
  9. ONDANSETRON [Suspect]
     Active Substance: ONDANSETRON
     Indication: Chemical poisoning
     Dosage: 4 MILLIGRAM, THREE TIMES A DAY
  10. ONDANSETRON [Suspect]
     Active Substance: ONDANSETRON
     Indication: Pneumothorax spontaneous
     Dosage: 4 MILLIGRAM, THREE TIMES A DAY
     Route: 042
  11. ONDANSETRON [Suspect]
     Active Substance: ONDANSETRON
     Dosage: 4 MILLIGRAM, THREE TIMES A DAY
     Route: 042
  12. ONDANSETRON [Suspect]
     Active Substance: ONDANSETRON
     Dosage: 4 MILLIGRAM, THREE TIMES A DAY
  13. ACETYLCYSTEINE [Suspect]
     Active Substance: ACETYLCYSTEINE
     Indication: Chemical poisoning
     Dosage: 9 GRAM, 9G IN 50% GLUCOSE [DEXTROSE] OVER ONE HOUR
  14. ACETYLCYSTEINE [Suspect]
     Active Substance: ACETYLCYSTEINE
     Indication: Pneumothorax spontaneous
     Dosage: 9 GRAM, 9G IN 50% GLUCOSE [DEXTROSE] OVER ONE HOUR
  15. ACETYLCYSTEINE [Suspect]
     Active Substance: ACETYLCYSTEINE
     Dosage: 9 GRAM, 9G IN 50% GLUCOSE [DEXTROSE] OVER ONE HOUR
     Route: 065
  16. ACETYLCYSTEINE [Suspect]
     Active Substance: ACETYLCYSTEINE
     Dosage: 9 GRAM, 9G IN 50% GLUCOSE [DEXTROSE] OVER ONE HOUR
     Route: 065
  17. ACETYLCYSTEINE [Suspect]
     Active Substance: ACETYLCYSTEINE
     Dosage: 3 GRAM, FOLLOWED BY 3G IN 500ML GLUCOSE OVER FOUR HOURS
  18. ACETYLCYSTEINE [Suspect]
     Active Substance: ACETYLCYSTEINE
     Dosage: 3 GRAM, FOLLOWED BY 3G IN 500ML GLUCOSE OVER FOUR HOURS
  19. ACETYLCYSTEINE [Suspect]
     Active Substance: ACETYLCYSTEINE
     Dosage: 3 GRAM, FOLLOWED BY 3G IN 500ML GLUCOSE OVER FOUR HOURS
     Route: 065
  20. ACETYLCYSTEINE [Suspect]
     Active Substance: ACETYLCYSTEINE
     Dosage: 3 GRAM, FOLLOWED BY 3G IN 500ML GLUCOSE OVER FOUR HOURS
     Route: 065
  21. ACETYLCYSTEINE [Suspect]
     Active Substance: ACETYLCYSTEINE
     Dosage: 6 GRAM, THEN 6G IN 500ML GLUCOSE OVER THE NEXT FOUR HOURS
  22. ACETYLCYSTEINE [Suspect]
     Active Substance: ACETYLCYSTEINE
     Dosage: 6 GRAM, THEN 6G IN 500ML GLUCOSE OVER THE NEXT FOUR HOURS
     Route: 065
  23. ACETYLCYSTEINE [Suspect]
     Active Substance: ACETYLCYSTEINE
     Dosage: 6 GRAM, THEN 6G IN 500ML GLUCOSE OVER THE NEXT FOUR HOURS
  24. ACETYLCYSTEINE [Suspect]
     Active Substance: ACETYLCYSTEINE
     Dosage: 6 GRAM, THEN 6G IN 500ML GLUCOSE OVER THE NEXT FOUR HOURS
     Route: 065
  25. RANITIDINE [Suspect]
     Active Substance: RANITIDINE
     Indication: Chemical poisoning
     Dosage: 50 MILLIGRAM, BID
  26. RANITIDINE [Suspect]
     Active Substance: RANITIDINE
     Indication: Pneumothorax spontaneous
     Dosage: 50 MILLIGRAM, BID
     Route: 042
  27. RANITIDINE [Suspect]
     Active Substance: RANITIDINE
     Dosage: 50 MILLIGRAM, BID
     Route: 042
  28. RANITIDINE [Suspect]
     Active Substance: RANITIDINE
     Dosage: 50 MILLIGRAM, BID
  29. DEXTROSE [Suspect]
     Active Substance: DEXTROSE MONOHYDRATE
     Indication: Chemical poisoning
     Dosage: UNK, ACETYLCYSTEINE IN GLUCOSE OVER ONE HOUR
  30. DEXTROSE [Suspect]
     Active Substance: DEXTROSE MONOHYDRATE
     Indication: Pneumothorax spontaneous
     Dosage: UNK, ACETYLCYSTEINE IN GLUCOSE OVER ONE HOUR
  31. DEXTROSE [Suspect]
     Active Substance: DEXTROSE MONOHYDRATE
     Dosage: UNK, ACETYLCYSTEINE IN GLUCOSE OVER ONE HOUR
     Route: 065
  32. DEXTROSE [Suspect]
     Active Substance: DEXTROSE MONOHYDRATE
     Dosage: UNK, ACETYLCYSTEINE IN GLUCOSE OVER ONE HOUR
     Route: 065
  33. DEXTROSE [Suspect]
     Active Substance: DEXTROSE MONOHYDRATE
     Dosage: 500 MILLILITER, ACETYLCYSTEINE IN 500ML GLUCOSE OVER FOUR HOURS
  34. DEXTROSE [Suspect]
     Active Substance: DEXTROSE MONOHYDRATE
     Dosage: 500 MILLILITER, ACETYLCYSTEINE IN 500ML GLUCOSE OVER FOUR HOURS
  35. DEXTROSE [Suspect]
     Active Substance: DEXTROSE MONOHYDRATE
     Dosage: 500 MILLILITER, ACETYLCYSTEINE IN 500ML GLUCOSE OVER FOUR HOURS
     Route: 065
  36. DEXTROSE [Suspect]
     Active Substance: DEXTROSE MONOHYDRATE
     Dosage: 500 MILLILITER, ACETYLCYSTEINE IN 500ML GLUCOSE OVER FOUR HOURS
     Route: 065
  37. DEXTROSE [Suspect]
     Active Substance: DEXTROSE MONOHYDRATE
     Dosage: 500 MILLILITER, ACETYLCYSTEINE IN 500ML GLUCOSE OVER THE NEXT FOUR HOURS
  38. DEXTROSE [Suspect]
     Active Substance: DEXTROSE MONOHYDRATE
     Dosage: 500 MILLILITER, ACETYLCYSTEINE IN 500ML GLUCOSE OVER THE NEXT FOUR HOURS
     Route: 065
  39. DEXTROSE [Suspect]
     Active Substance: DEXTROSE MONOHYDRATE
     Dosage: 500 MILLILITER, ACETYLCYSTEINE IN 500ML GLUCOSE OVER THE NEXT FOUR HOURS
  40. DEXTROSE [Suspect]
     Active Substance: DEXTROSE MONOHYDRATE
     Dosage: 500 MILLILITER, ACETYLCYSTEINE IN 500ML GLUCOSE OVER THE NEXT FOUR HOURS
     Route: 065

REACTIONS (1)
  - Drug ineffective [Fatal]
